FAERS Safety Report 4998670-2 (Version None)
Quarter: 2006Q2

REPORT INFORMATION
  Report Type: 
  Country: None (occurrence: None)
  Receive Date: 20060508
  Receipt Date: 20060426
  Transmission Date: 20061013
  Serious: Yes (Death, Other)
  Sender: FDA-Public Use
  Company Number: 2006-02-1956

PATIENT
  Age: 73 Year
  Sex: Female
  Weight: 118 kg

DRUGS (1)
  1. TEMODAL [Suspect]
     Indication: METASTATIC MALIGNANT MELANOMA
     Dosage: 325 MG QD ORAL
     Route: 048
     Dates: start: 20050510, end: 20051004

REACTIONS (10)
  - ANAEMIA [None]
  - ATRIAL FIBRILLATION [None]
  - CYTOMEGALOVIRUS INFECTION [None]
  - EUTHANASIA [None]
  - HAEMATOMA [None]
  - MALIGNANT MELANOMA STAGE IV [None]
  - MALIGNANT NEOPLASM PROGRESSION [None]
  - OESOPHAGITIS ULCERATIVE [None]
  - THROMBOCYTOPENIA [None]
  - VENTRICULAR DYSFUNCTION [None]
